FAERS Safety Report 7653085-3 (Version None)
Quarter: 2011Q3

REPORT INFORMATION
  Report Type: 
  Country: None (occurrence: None)
  Receive Date: 20110803
  Receipt Date: 20110801
  Transmission Date: 20111222
  Serious: Yes (Hospitalization)
  Sender: FDA-Public Use
  Company Number: DE-ABBOTT-11P-062-0841808-00

PATIENT
  Age: 38 Year
  Sex: Female
  Weight: 133 kg

DRUGS (1)
  1. HUMIRA [Suspect]
     Indication: CROHN'S DISEASE
     Route: 058
     Dates: start: 20070605

REACTIONS (2)
  - ANAL ABSCESS [None]
  - FEMALE GENITAL TRACT FISTULA [None]
